FAERS Safety Report 4870040-7 (Version None)
Quarter: 2005Q4

REPORT INFORMATION
  Report Type: 
  Country: None (occurrence: None)
  Receive Date: 20051223
  Receipt Date: 20050106
  Transmission Date: 20060501
  Serious: Yes (Hospitalization)
  Sender: FDA-Public Use
  Company Number: 2005BI000540

PATIENT
  Age: 54 Year
  Sex: Female
  Weight: 49.8957 kg

DRUGS (4)
  1. AVONEX [Suspect]
     Indication: MULTIPLE SCLEROSIS
     Dosage: 30 UG; QW; IM
     Route: 030
     Dates: start: 19961201
  2. AVONEX [Suspect]
     Indication: MULTIPLE SCLEROSIS
     Dosage: 30 UG; QW; IM
     Route: 030
  3. VITAMIN (NOS) [Concomitant]
  4. TYLENOL PL [Concomitant]

REACTIONS (9)
  - ASTHENIA [None]
  - DEHYDRATION [None]
  - DIARRHOEA [None]
  - HEADACHE [None]
  - INFLUENZA [None]
  - INSOMNIA [None]
  - MIGRAINE [None]
  - MONOPLEGIA [None]
  - PYREXIA [None]
